FAERS Safety Report 13903863 (Version 2)
Quarter: 2017Q3

REPORT INFORMATION
  Report Type: Report from Study
  Country: US (occurrence: US)
  Receive Date: 20170824
  Receipt Date: 20170907
  Transmission Date: 20171127
  Serious: Yes (Hospitalization, Other)
  Sender: FDA-Public Use
  Company Number: US-ARIAD PHARMACEUTICALS, INC-2017US008768

PATIENT
  Sex: Female

DRUGS (1)
  1. ICLUSIG [Suspect]
     Active Substance: PONATINIB
     Indication: ACUTE LYMPHOCYTIC LEUKAEMIA
     Dosage: 45 MG, QD
     Route: 048
     Dates: start: 20170703

REACTIONS (13)
  - Gait inability [Unknown]
  - Cardiac disorder [Unknown]
  - Pancytopenia [Unknown]
  - Drug intolerance [Unknown]
  - Balance disorder [Unknown]
  - Gastrointestinal disorder [Unknown]
  - Blood pressure abnormal [Unknown]
  - Anxiety [Unknown]
  - Constipation [Unknown]
  - Aphasia [Unknown]
  - Renal disorder [Unknown]
  - Liver disorder [Unknown]
  - Dysphagia [Unknown]
